FAERS Safety Report 6744691-9 (Version None)
Quarter: 2010Q2

REPORT INFORMATION
  Report Type: 
  Country: None (occurrence: None)
  Receive Date: 20100527
  Receipt Date: 20100521
  Transmission Date: 20101027
  Serious: Yes (Hospitalization)
  Sender: FDA-Public Use
  Company Number: US-GILEAD-2010-0028476

PATIENT
  Sex: Male
  Weight: 125.76 kg

DRUGS (15)
  1. AMBRISENTAN [Suspect]
     Indication: IDIOPATHIC PULMONARY FIBROSIS
     Route: 048
     Dates: start: 20100402, end: 20100406
  2. AMBRISENTAN [Suspect]
     Route: 048
  3. LISINOPRIL [Concomitant]
     Indication: HYPERTENSION
  4. HYDROCHLOROTHIAZIDE [Concomitant]
     Indication: HYPERTENSION
  5. ATENOLOL [Concomitant]
     Indication: HYPERTENSION
  6. OXYGEN [Concomitant]
     Indication: SUPPLEMENTATION THERAPY
  7. OMEPRAZOLE [Concomitant]
     Indication: GASTROOESOPHAGEAL REFLUX PROPHYLAXIS
     Dates: start: 20091203
  8. PERCOCET [Concomitant]
     Indication: PAIN
     Dates: start: 20100120
  9. ENBREL [Concomitant]
     Indication: PSORIASIS
  10. CARMOL [Concomitant]
     Indication: PSORIASIS
  11. TACLONEX [Concomitant]
     Indication: PSORIASIS
  12. TRIAMCINOLONE ACETONIDE [Concomitant]
     Indication: PSORIASIS
  13. VITAMIN B-12 [Concomitant]
     Indication: SUPPLEMENTATION THERAPY
  14. FOLIC ACID [Concomitant]
     Indication: VITAMIN SUPPLEMENTATION
  15. FOLIC ACID [Concomitant]
     Indication: ANAEMIA

REACTIONS (1)
  - PNEUMONITIS [None]
